FAERS Safety Report 23981719 (Version 3)
Quarter: 2024Q3

REPORT INFORMATION
  Report Type: Spontaneous
  Country: GB (occurrence: None)
  Receive Date: 20240617
  Receipt Date: 20240726
  Transmission Date: 20241017
  Serious: Yes (Death)
  Sender: ASTRAZENECA
  Company Number: 2024A139310

PATIENT
  Age: 85 Year
  Sex: Male
  Weight: 98 kg

DRUGS (1)
  1. ANDEXANET ALFA [Suspect]
     Active Substance: ANDEXANET ALFA
     Route: 040
     Dates: start: 202310

REACTIONS (4)
  - Cardiac arrest [Fatal]
  - Anaphylactic reaction [Fatal]
  - Kounis syndrome [Fatal]
  - Myocardial infarction [Fatal]
